FAERS Safety Report 9034731 (Version 1)
Quarter: 2013Q1

REPORT INFORMATION
  Report Type: Spontaneous
  Country: GB (occurrence: None)
  Receive Date: 20130118
  Receipt Date: 20130118
  Transmission Date: 20140127
  Serious: Yes (Life-Threatening, Other)
  Sender: FDA-Public Use
  Company Number: ABR_00791_2013

PATIENT
  Age: 71 Year
  Sex: Female
  Weight: 100 kg

DRUGS (5)
  1. ERYTHROMYCIN (ERYTHROMYCIN) [Suspect]
     Indication: ABSCESS
     Route: 048
     Dates: start: 20121031, end: 20121106
  2. ASPIRIN [Concomitant]
  3. LEVOTHYROXINE [Concomitant]
  4. LISINOPRIL [Concomitant]
  5. PARACETAMOL [Concomitant]

REACTIONS (2)
  - Colitis [None]
  - Diarrhoea haemorrhagic [None]
